FAERS Safety Report 8294322-4 (Version None)
Quarter: 2012Q2

REPORT INFORMATION
  Report Type: 
  Country: None (occurrence: None)
  Receive Date: 20120418
  Receipt Date: 20120413
  Transmission Date: 20120825
  Serious: Yes (Other)
  Sender: FDA-Public Use
  Company Number: JP-SANOFI-AVENTIS-2012SA026372

PATIENT
  Age: 84 Year
  Sex: Female

DRUGS (1)
  1. PLAVIX [Suspect]
     Dosage: DATE FROM- BEFORE 2008
     Route: 048

REACTIONS (1)
  - DEPRESSED LEVEL OF CONSCIOUSNESS [None]
